FAERS Safety Report 8304787-7 (Version None)
Quarter: 2012Q2

REPORT INFORMATION
  Report Type: 
  Country: None (occurrence: None)
  Receive Date: 20120423
  Receipt Date: 20120416
  Transmission Date: 20120825
  Serious: Yes (Other)
  Sender: FDA-Public Use
  Company Number: US-BAYER-2012-037336

PATIENT
  Sex: Female

DRUGS (2)
  1. THYROID TAB [Suspect]
     Dosage: 90 MG, UNK
     Route: 048
  2. CIPROFLOXACIN HCL [Suspect]

REACTIONS (1)
  - ATRIAL FIBRILLATION [None]
